FAERS Safety Report 14453248 (Version 1)
Quarter: 2018Q1

REPORT INFORMATION
  Report Type: Spontaneous
  Country: None (occurrence: CO)
  Receive Date: 20180129
  Receipt Date: 20180129
  Transmission Date: 20180509
  Serious: Yes (Other)
  Sender: FDA-Public Use
  Company Number: CO-POPULATION COUNCIL, INC.-2040957

PATIENT
  Sex: Female

DRUGS (1)
  1. JADELLE [Suspect]
     Active Substance: LEVONORGESTREL
     Indication: CONTRACEPTION
     Dates: start: 20160429

REACTIONS (7)
  - Headache [None]
  - Vomiting [None]
  - Arthralgia [None]
  - Abdominal pain [None]
  - Hospitalisation [None]
  - Hospitalisation [None]
  - Dizziness [None]

NARRATIVE: CASE EVENT DATE: 20180107
